FAERS Safety Report 5699042-8 (Version None)
Quarter: 2008Q2

REPORT INFORMATION
  Report Type: 
  Country: None (occurrence: None)
  Receive Date: 20080408
  Receipt Date: 20060926
  Transmission Date: 20081010
  Serious: No
  Sender: FDA-Public Use
  Company Number: US-BAYER-US-2006-029095

PATIENT
  Age: 51 Year
  Sex: Male
  Weight: 86 kg

DRUGS (7)
  1. ULTRAVIST 300 [Suspect]
     Indication: COMPUTERISED TOMOGRAM ABDOMEN
     Dosage: UNIT DOSE: 100 ML
     Route: 042
     Dates: start: 20060926, end: 20060926
  2. GASTROGRAFIN [Concomitant]
     Dosage: UNIT DOSE: 10 ML
     Route: 042
     Dates: start: 20060926, end: 20060926
  3. LORAZEPAM [Concomitant]
  4. MORPHINE SULFATE [Concomitant]
  5. METOCLOPRAMIDE [Concomitant]
  6. ENSURE [Concomitant]
  7. SULFAT [Concomitant]

REACTIONS (7)
  - COUGH [None]
  - ERYTHEMA [None]
  - NAUSEA [None]
  - PRURITUS [None]
  - RASH ERYTHEMATOUS [None]
  - RASH PAPULAR [None]
  - VOMITING [None]
